FAERS Safety Report 4503602-7 (Version None)
Quarter: 2004Q4

REPORT INFORMATION
  Report Type: 
  Country: None (occurrence: None)
  Receive Date: 20041112
  Receipt Date: 20041102
  Transmission Date: 20050328
  Serious: Yes (Other)
  Sender: FDA-Public Use
  Company Number: 2004242368JP

PATIENT
  Sex: Female

DRUGS (5)
  1. CAMPTO(IRINOTECAN) SOLUTION, STERILE [Suspect]
     Indication: RECTAL CANCER
  2. AZULENE (AZULENE) [Concomitant]
  3. ETIZOLAM (ETIZOLAM) [Concomitant]
  4. FAMOTIDINE [Concomitant]
  5. DICLOFENAC SODIUM [Concomitant]

REACTIONS (1)
  - HYPONATRAEMIA [None]
